FAERS Safety Report 24671394 (Version 1)
Quarter: 2024Q4

REPORT INFORMATION
  Report Type: Spontaneous
  Country: CN (occurrence: CN)
  Receive Date: 20241127
  Receipt Date: 20241127
  Transmission Date: 20250115
  Serious: Yes (Hospitalization)
  Sender: EISAI
  Company Number: CN-Eisai-EC-2024-179439

PATIENT
  Age: 69 Year
  Sex: Male
  Weight: 55 kg

DRUGS (6)
  1. LENVATINIB [Suspect]
     Active Substance: LENVATINIB
     Indication: Hepatocellular carcinoma
     Route: 048
     Dates: start: 20220823, end: 20220913
  2. FINASTERIDE [Concomitant]
     Active Substance: FINASTERIDE
     Indication: Benign prostatic hyperplasia
     Dosage: DOSE AND FREQUENCY WERE UNKNOWN.
     Route: 048
     Dates: start: 20180915
  3. RALTITREXED [Concomitant]
     Active Substance: RALTITREXED
     Indication: Hepatocellular carcinoma
     Dosage: DOSE AND FREQUENCY WERE UNKNOWN
     Dates: start: 20220822, end: 20221216
  4. LIPIODOL [Concomitant]
     Active Substance: ETHIODIZED OIL
     Indication: Hepatocellular carcinoma
     Dosage: DOSE AND FREQUENCY WERE UNKNOWN
     Dates: start: 20220822, end: 20221216
  5. TISLELIZUMAB [Concomitant]
     Active Substance: TISLELIZUMAB
     Indication: Hepatocellular carcinoma
     Route: 042
     Dates: start: 20221217
  6. TISLELIZUMAB [Concomitant]
     Active Substance: TISLELIZUMAB
     Route: 042
     Dates: start: 20220823, end: 20220823

REACTIONS (1)
  - Diarrhoea [Recovered/Resolved]

NARRATIVE: CASE EVENT DATE: 20220912
